FAERS Safety Report 13916465 (Version 1)
Quarter: 2017Q3

REPORT INFORMATION
  Report Type: Report from Study
  Country: BR (occurrence: BR)
  Receive Date: 20170829
  Receipt Date: 20170829
  Transmission Date: 20171127
  Serious: Yes (Hospitalization, Other)
  Sender: FDA-Public Use
  Company Number: PHHY2015BR136012

PATIENT
  Sex: Female
  Weight: 63 kg

DRUGS (2)
  1. GLIVEC [Suspect]
     Active Substance: IMATINIB MESYLATE
     Indication: CHRONIC MYELOID LEUKAEMIA
     Dosage: 400 MG, QD (1 TABLET OF 400 MG)
     Route: 048
     Dates: start: 20090807
  2. IMATINIB [Suspect]
     Active Substance: IMATINIB
     Indication: CHRONIC MYELOID LEUKAEMIA
     Dosage: UNK
     Route: 065

REACTIONS (24)
  - Bowel movement irregularity [Unknown]
  - Chest pain [Recovered/Resolved]
  - Nausea [Unknown]
  - Arrhythmia [Unknown]
  - Gait disturbance [Unknown]
  - Crying [Unknown]
  - Apathy [Unknown]
  - Exostosis [Recovered/Resolved]
  - Labyrinthitis [Unknown]
  - Pain in extremity [Unknown]
  - Dysentery [Unknown]
  - Muscle spasms [Unknown]
  - Vomiting [Recovered/Resolved]
  - Anaemia [Unknown]
  - Malaise [Unknown]
  - Dizziness [Unknown]
  - Faeces soft [Unknown]
  - Diarrhoea [Not Recovered/Not Resolved]
  - Nasal dryness [Unknown]
  - Spinal pain [Unknown]
  - Feeling abnormal [Unknown]
  - Weight increased [Unknown]
  - Depression [Unknown]
  - Weight decreased [Unknown]
